FAERS Safety Report 25007342 (Version 2)
Quarter: 2025Q2

REPORT INFORMATION
  Report Type: Report from Study
  Country: ES (occurrence: ES)
  Receive Date: 20250225
  Receipt Date: 20250501
  Transmission Date: 20250717
  Serious: Yes (Other)
  Sender: JOHNSON AND JOHNSON
  Company Number: ES-JNJFOC-20250220625

PATIENT
  Age: 63 Year
  Sex: Female

DRUGS (3)
  1. TALQUETAMAB [Suspect]
     Active Substance: TALQUETAMAB
     Indication: Plasma cell myeloma refractory
     Route: 065
     Dates: start: 20230403, end: 20240215
  2. TALQUETAMAB [Suspect]
     Active Substance: TALQUETAMAB
     Route: 065
     Dates: start: 20230403, end: 20240215
  3. TALQUETAMAB [Suspect]
     Active Substance: TALQUETAMAB
     Route: 065
     Dates: start: 20230403, end: 20240215

REACTIONS (4)
  - Renal impairment [Recovered/Resolved]
  - Administration site extravasation [Recovered/Resolved]
  - Product administration error [Recovered/Resolved]
  - Skin papilloma [Recovering/Resolving]

NARRATIVE: CASE EVENT DATE: 20230403
